FAERS Safety Report 10713195 (Version 2)
Quarter: 2015Q1

REPORT INFORMATION
  Report Type: Other
  Country: IT (occurrence: IT)
  Receive Date: 20150115
  Receipt Date: 20150205
  Transmission Date: 20150721
  Serious: Yes (Hospitalization)
  Sender: FDA-Public Use
  Company Number: IT-TAKEDA-2015JNJ000030

PATIENT

DRUGS (4)
  1. VELCADE [Suspect]
     Active Substance: BORTEZOMIB
     Indication: PRODUCT USED FOR UNKNOWN INDICATION
     Dosage: 2.5 MG, UNK
     Route: 058
     Dates: start: 20141125, end: 20141125
  2. PREDNISONE. [Concomitant]
     Active Substance: PREDNISONE
     Dosage: 75 MG, UNK
     Route: 065
  3. ACICLOVIR [Concomitant]
     Active Substance: ACYCLOVIR
     Dosage: 800 MG, UNK
     Route: 065
  4. MELPHALAN [Concomitant]
     Active Substance: MELPHALAN
     Dosage: 12 MG, UNK
     Route: 065

REACTIONS (2)
  - Palatal oedema [Recovering/Resolving]
  - Rash [Recovering/Resolving]

NARRATIVE: CASE EVENT DATE: 20141130
